FAERS Safety Report 8529602 (Version 2)
Quarter: 2014Q1

REPORT INFORMATION
  Report Type: Spontaneous
  Country: JP (occurrence: JP)
  Receive Date: 20120425
  Receipt Date: 20140221
  Transmission Date: 20141002
  Serious: Yes (Other)
  Sender: FDA-Public Use
  Company Number: JP-PFIZER INC-2005064683

PATIENT
  Age: 6 Year
  Sex: Male
  Weight: 34 kg

DRUGS (12)
  1. TESTOSTERONE ENANTATE [Concomitant]
     Dosage: 150 MG, MONTHLY
  2. GENOTROPIN [Suspect]
     Indication: HYPOPITUITARISM
     Dosage: 0.2 MG, 1X/DAY
     Route: 058
     Dates: start: 19970819
  3. GENOTROPIN [Suspect]
     Dosage: 0.3 MG, 1X/DAY
     Route: 058
     Dates: start: 19980217, end: 19980721
  4. GENOTROPIN [Suspect]
     Dosage: 0.4 MG, 1X/DAY
     Route: 058
     Dates: start: 19980721, end: 19980925
  5. GENOTROPIN [Suspect]
     Dosage: 0.5 MG, 1X/DAY
     Dates: start: 19980925, end: 19990119
  6. GENOTROPIN [Suspect]
     Dosage: 0.6 MG, 1X/DAY
     Route: 058
     Dates: start: 19990119, end: 20041008
  7. GENOTROPIN [Suspect]
     Dosage: 0.4 MG, 1X/DAY
     Route: 058
     Dates: start: 20041008
  8. LEVOTHYROXINE SODIUM [Concomitant]
     Route: 048
     Dates: start: 19970515
  9. CORTRIL [Concomitant]
     Route: 048
     Dates: start: 19970523
  10. DESMOPRESSIN [Concomitant]
     Indication: POLYURIA
     Route: 055
     Dates: start: 20000321
  11. TESTOSTERONE ENANTATE [Concomitant]
     Indication: SECONDARY SEXUAL CHARACTERISTICS ABSENCE
     Dosage: 50 MG, THREE TIMES
     Route: 030
  12. TESTOSTERONE ENANTATE [Concomitant]
     Indication: MICROPENIS
     Dosage: 75 MG, MONTHLY

REACTIONS (1)
  - Osteochondrosis [Recovered/Resolved]
